FAERS Safety Report 24194502 (Version 1)
Quarter: 2024Q3

REPORT INFORMATION
  Report Type: Other
  Country: US (occurrence: US)
  Receive Date: 20240809
  Receipt Date: 20240809
  Transmission Date: 20241017
  Serious: Yes (Other)
  Sender: B BRAUN
  Company Number: US-B.Braun Medical Inc.-2160236

PATIENT
  Age: 53 Year
  Sex: Female

DRUGS (11)
  1. BUPIVACAINE HYDROCHLORIDE [Suspect]
     Active Substance: BUPIVACAINE HYDROCHLORIDE
     Indication: Epidural analgesia
  2. ROPIVACAINE. [Suspect]
     Active Substance: ROPIVACAINE HYDROCHLORIDE
  3. SALINE [Concomitant]
     Active Substance: SODIUM CHLORIDE
  4. EPINEPHRINE [Concomitant]
     Active Substance: EPINEPHRINE
  5. FENTANYL [Concomitant]
     Active Substance: FENTANYL\FENTANYL CITRATE
  6. ROCURONIUM [Concomitant]
     Active Substance: ROCURONIUM BROMIDE
  7. PROPOFOL [Concomitant]
     Active Substance: PROPOFOL
  8. TRAZODONE [Concomitant]
     Active Substance: TRAZODONE HYDROCHLORIDE
  9. BACLOFEN [Concomitant]
     Active Substance: BACLOFEN
  10. ACETAMINOPHEN\OXYCODONE HYDROCHLORIDE [Concomitant]
     Active Substance: ACETAMINOPHEN\OXYCODONE HYDROCHLORIDE
  11. LIDOCAINE [Suspect]
     Active Substance: LIDOCAINE

REACTIONS (6)
  - Paraesthesia [Recovered/Resolved]
  - Brachial plexopathy [Recovered/Resolved]
  - Device placement issue [Recovered/Resolved]
  - Muscular weakness [Recovered/Resolved]
  - Hypotension [Recovered/Resolved]
  - Horner^s syndrome [Recovered/Resolved]
